FAERS Safety Report 6211964-8 (Version None)
Quarter: 2009Q2

REPORT INFORMATION
  Report Type: 
  Country: None (occurrence: None)
  Receive Date: 20090529
  Receipt Date: 20090514
  Transmission Date: 20091009
  Serious: Yes (Other)
  Sender: FDA-Public Use
  Company Number: 8046411

PATIENT
  Sex: Female

DRUGS (1)
  1. CIMZIA [Suspect]
     Dates: start: 20080905

REACTIONS (1)
  - SURGERY [None]
